FAERS Safety Report 7198383-5 (Version None)
Quarter: 2010Q4

REPORT INFORMATION
  Report Type: 
  Country: None (occurrence: None)
  Receive Date: 20101227
  Receipt Date: 20101216
  Transmission Date: 20110411
  Serious: Yes (Death, Life-Threatening, Hospitalization)
  Sender: FDA-Public Use
  Company Number: US-BRISTOL-MYERS SQUIBB COMPANY-15440860

PATIENT
  Age: 54 Year
  Sex: Male
  Weight: 70 kg

DRUGS (4)
  1. NAFCILLIN SODIUM [Suspect]
     Route: 042
  2. CISPLATIN [Suspect]
     Indication: NASOPHARYNGEAL CANCER
  3. DOCETAXEL [Suspect]
     Indication: NASOPHARYNGEAL CANCER
  4. DAPTOMYCIN [Concomitant]

REACTIONS (4)
  - BONE MARROW FAILURE [None]
  - PNEUMOTHORAX [None]
  - RENAL FAILURE ACUTE [None]
  - STAPHYLOCOCCAL BACTERAEMIA [None]
